FAERS Safety Report 5753165-3 (Version None)
Quarter: 2008Q2

REPORT INFORMATION
  Report Type: 
  Country: None (occurrence: None)
  Receive Date: 20080530
  Receipt Date: 20080519
  Transmission Date: 20081010
  Serious: Yes (Life-Threatening, Hospitalization)
  Sender: FDA-Public Use
  Company Number: US-JNJFOC-20080203665

PATIENT
  Sex: Male

DRUGS (8)
  1. KETOCONAZOLE [Suspect]
     Route: 048
  2. KETOCONAZOLE [Suspect]
     Indication: PROSTATE CANCER
     Route: 048
  3. HYDROCHLOROTHIAZIDE [Concomitant]
     Indication: HYPERTENSION
     Route: 048
  4. VERAPAMIL ER [Concomitant]
     Indication: HYPERTENSION
     Route: 065
  5. ASPIRIN [Concomitant]
     Route: 048
  6. DOCUSATE SODIUM [Concomitant]
     Route: 065
  7. PREDNISONE [Concomitant]
     Route: 065
  8. CITRACAL+D [Concomitant]
     Route: 065

REACTIONS (4)
  - ATRIOVENTRICULAR BLOCK COMPLETE [None]
  - DIARRHOEA [None]
  - DIZZINESS [None]
  - NAUSEA [None]
